FAERS Safety Report 7587086-0 (Version None)
Quarter: 2011Q3

REPORT INFORMATION
  Report Type: 
  Country: None (occurrence: None)
  Receive Date: 20110701
  Receipt Date: 20110620
  Transmission Date: 20111222
  Serious: Yes (Hospitalization)
  Sender: FDA-Public Use
  Company Number: PHHY2011US56045

PATIENT
  Sex: Female

DRUGS (1)
  1. RECLAST [Suspect]
     Indication: OSTEOPOROSIS
     Route: 042
     Dates: start: 20110616

REACTIONS (7)
  - NAUSEA [None]
  - PYREXIA [None]
  - DYSPNOEA [None]
  - CHEST PAIN [None]
  - DIVERTICULITIS [None]
  - HEADACHE [None]
  - ASTHENIA [None]
